FAERS Safety Report 9736653 (Version 2)
Quarter: 2015Q3

REPORT INFORMATION
  Report Type: Spontaneous
  Country: US (occurrence: US)
  Receive Date: 20131206
  Receipt Date: 20150804
  Transmission Date: 20151125
  Serious: No
  Sender: FDA-Public Use
  Company Number: US-GILEAD-2009-0022803

PATIENT
  Age: 50 Year
  Sex: Female
  Weight: 85 kg

DRUGS (12)
  1. VASOTEC [Concomitant]
     Active Substance: ENALAPRIL MALEATE
  2. LETAIRIS [Suspect]
     Active Substance: AMBRISENTAN
     Indication: PULMONARY ARTERIAL HYPERTENSION
     Route: 048
     Dates: start: 20080226
  3. COMBIVENT [Concomitant]
     Active Substance: ALBUTEROL SULFATE\IPRATROPIUM BROMIDE
  4. DRAMAMINE [Concomitant]
     Active Substance: DIMENHYDRINATE
  5. PREVACID [Concomitant]
     Active Substance: LANSOPRAZOLE
  6. XANAX [Concomitant]
     Active Substance: ALPRAZOLAM
  7. VENTAVIS [Concomitant]
     Active Substance: ILOPROST
  8. CEFUROXIME AXETIL. [Concomitant]
     Active Substance: CEFUROXIME AXETIL
  9. OXYGEN. [Concomitant]
     Active Substance: OXYGEN
  10. PULMICORT TURBUHALER [Concomitant]
     Active Substance: BUDESONIDE
  11. REVATIO [Suspect]
     Active Substance: SILDENAFIL CITRATE
  12. FUROSEMIDE. [Concomitant]
     Active Substance: FUROSEMIDE

REACTIONS (3)
  - Throat irritation [Unknown]
  - Nasal congestion [Unknown]
  - Ear discomfort [Unknown]
